FAERS Safety Report 14615223 (Version 1)
Quarter: 2018Q1

REPORT INFORMATION
  Report Type: Spontaneous
  Country: US (occurrence: US)
  Receive Date: 20180308
  Receipt Date: 20180308
  Transmission Date: 20180509
  Serious: Yes (Disabling, Other)
  Sender: FDA-Public Use
  Company Number: US-REGENERON PHARMACEUTICALS, INC.-2018-16443

PATIENT

DRUGS (9)
  1. AMLODIPINE [Concomitant]
     Active Substance: AMLODIPINE BESYLATE
     Indication: PRODUCT USED FOR UNKNOWN INDICATION
     Dosage: 5 MG, QD
  2. INSULIN [Concomitant]
     Active Substance: INSULIN NOS
     Indication: PRODUCT USED FOR UNKNOWN INDICATION
     Dosage: UNK
     Dates: start: 2016
  3. EYLEA [Suspect]
     Active Substance: AFLIBERCEPT
     Indication: DIABETIC RETINAL OEDEMA
     Dosage: 2 MG, Q6 WK, FIRST DOSE
     Route: 031
     Dates: start: 20170516
  4. CRESTOR [Concomitant]
     Active Substance: ROSUVASTATIN CALCIUM
     Indication: PRODUCT USED FOR UNKNOWN INDICATION
     Dosage: 20 MG, QD
  5. EYLEA [Suspect]
     Active Substance: AFLIBERCEPT
     Indication: VITRECTOMY
     Dosage: 2 MG, OS, Q6 WKS
     Route: 031
     Dates: start: 20170620, end: 20170620
  6. EYLEA [Suspect]
     Active Substance: AFLIBERCEPT
     Dosage: 2 MG, LAST PRIOR EVENT OD
     Route: 031
     Dates: start: 20180213, end: 20180213
  7. VICTOZA [Concomitant]
     Active Substance: LIRAGLUTIDE
     Indication: PRODUCT USED FOR UNKNOWN INDICATION
     Dosage: 1.5 DF, BID
  8. ASPIRIN 81 [Concomitant]
     Active Substance: ASPIRIN
     Indication: PRODUCT USED FOR UNKNOWN INDICATION
     Dosage: 81 MG, QD
  9. METOPROLOL. [Concomitant]
     Active Substance: METOPROLOL
     Indication: PRODUCT USED FOR UNKNOWN INDICATION
     Dosage: 50 MG, BID

REACTIONS (8)
  - Vision blurred [Recovering/Resolving]
  - Blindness unilateral [Unknown]
  - Blindness unilateral [Not Recovered/Not Resolved]
  - Vitrectomy [Recovered/Resolved]
  - Eye irritation [Recovered/Resolved]
  - Photophobia [Unknown]
  - Eye inflammation [Recovering/Resolving]
  - Off label use [Unknown]

NARRATIVE: CASE EVENT DATE: 20170620
